FAERS Safety Report 4437009-8 (Version None)
Quarter: 2004Q3

REPORT INFORMATION
  Report Type: 
  Country: None (occurrence: None)
  Receive Date: 20040830
  Receipt Date: 20040825
  Transmission Date: 20050211
  Serious: Yes (Hospitalization, Other)
  Sender: FDA-Public Use
  Company Number: US-MERCK-0408USA01939

PATIENT
  Age: 65 Year
  Sex: Male

DRUGS (2)
  1. HERBS (UNSPECIFIED) [Concomitant]
     Route: 065
  2. ZOCOR [Suspect]
     Route: 048

REACTIONS (1)
  - LOSS OF CONSCIOUSNESS [None]
